FAERS Safety Report 9625142 (Version 1)
Quarter: 2013Q4

REPORT INFORMATION
  Report Type: Spontaneous
  Country: GB (occurrence: GB)
  Receive Date: 20131016
  Receipt Date: 20131016
  Transmission Date: 20140711
  Serious: Yes (Other)
  Sender: FDA-Public Use
  Company Number: GB-009507513-1310GBR006239

PATIENT
  Age: 18 Year
  Sex: Male

DRUGS (2)
  1. SINGULAIR [Suspect]
  2. LANSOPRAZOLE [Concomitant]

REACTIONS (2)
  - Surgery [Unknown]
  - Gastrostomy [Unknown]
